FAERS Safety Report 9619628 (Version 1)
Quarter: 2013Q4

REPORT INFORMATION
  Report Type: Spontaneous
  Country: US (occurrence: US)
  Receive Date: 20131014
  Receipt Date: 20131014
  Transmission Date: 20140711
  Serious: Yes (Life-Threatening, Hospitalization)
  Sender: FDA-Public Use
  Company Number: US-MALLINCKRODT-T201304557

PATIENT
  Sex: Male

DRUGS (1)
  1. GABLOFEN [Suspect]
     Indication: MUSCLE SPASTICITY
     Dosage: 1316.1 MCG/DAY
     Route: 037
     Dates: end: 2013

REACTIONS (3)
  - Sepsis [Recovering/Resolving]
  - Device failure [Recovered/Resolved]
  - Hypertonia [Unknown]
